FAERS Safety Report 9133629 (Version 1)
Quarter: 2013Q1

REPORT INFORMATION
  Report Type: Other
  Country: US (occurrence: US)
  Receive Date: 20130123
  Receipt Date: 20130123
  Transmission Date: 20140127
  Serious: Yes (Death, Hospitalization)
  Sender: FDA-Public Use
  Company Number: US-CTI_01505_2012

PATIENT
  Sex: 0

DRUGS (1)
  1. NICARDIPINE [Suspect]
     Indication: HYPERTENSION
     Dosage: INTRAVENOUS INFUSION

REACTIONS (1)
  - Death [Fatal]
